FAERS Safety Report 7971013 (Version 4)
Quarter: 2013Q4

REPORT INFORMATION
  Report Type: Spontaneous
  Country: US (occurrence: US)
  Receive Date: 20110602
  Receipt Date: 20131204
  Transmission Date: 20140711
  Serious: Yes (Hospitalization, Disabling, Other)
  Sender: FDA-Public Use
  Company Number: US-ASTRAZENECA-2011SE32272

PATIENT
  Age: 60 Year
  Sex: Female
  Weight: 72.6 kg

DRUGS (22)
  1. NEXIUM [Suspect]
     Indication: GASTROOESOPHAGEAL REFLUX DISEASE
     Route: 048
     Dates: start: 2001
  2. NEXIUM [Suspect]
     Indication: GASTROOESOPHAGEAL REFLUX DISEASE
     Route: 048
     Dates: start: 20061022
  3. NEXIUM [Suspect]
     Indication: GASTROOESOPHAGEAL REFLUX DISEASE
     Route: 048
     Dates: start: 20070203
  4. NEXIUM [Suspect]
     Indication: GASTROOESOPHAGEAL REFLUX DISEASE
     Route: 048
  5. PRILOSEC [Suspect]
     Indication: GASTROOESOPHAGEAL REFLUX DISEASE
     Route: 048
  6. ZANTAC [Concomitant]
     Indication: GASTROOESOPHAGEAL REFLUX DISEASE
  7. TUMS [Concomitant]
  8. ROLAIDS [Concomitant]
  9. MYLANTA [Concomitant]
  10. ALKA SELTZER [Concomitant]
  11. MILK OF MAGNESIA [Concomitant]
  12. GAVISCON [Concomitant]
  13. PEPTO BISMOL [Concomitant]
  14. TEMAZEPAM [Concomitant]
     Indication: SLEEP DISORDER
  15. NITROFURANTOIN [Concomitant]
  16. TRAMADOL [Concomitant]
     Indication: PAIN
     Dosage: 37.5/325 MG TABLET TAKE 1 TO 2 TABLET BY MOUTH EVERY 4 TO 6 HOURS
  17. CYMBALTA [Concomitant]
  18. ZOLPIDEM [Concomitant]
     Dates: start: 20100304
  19. WELLBUTRIN [Concomitant]
  20. ABILIFY [Concomitant]
     Dates: start: 20110120
  21. AMBIEN [Concomitant]
     Dates: start: 20061023
  22. SEROQUEL [Concomitant]
     Dates: start: 20081206

REACTIONS (17)
  - Spinal fracture [Unknown]
  - Spinal disorder [Unknown]
  - Intervertebral disc degeneration [Unknown]
  - Upper limb fracture [Unknown]
  - Breast cancer [Unknown]
  - Large intestine benign neoplasm [Unknown]
  - Arthralgia [Unknown]
  - Depression [Unknown]
  - Osteoporosis [Unknown]
  - Wrist fracture [Unknown]
  - Hand fracture [Unknown]
  - Gastrointestinal disorder [Unknown]
  - Fibromyalgia [Unknown]
  - Fatigue [Unknown]
  - Arthritis [Unknown]
  - Intervertebral disc protrusion [Unknown]
  - Spinal column stenosis [Unknown]
